FAERS Safety Report 4778033-5 (Version None)
Quarter: 2005Q3

REPORT INFORMATION
  Report Type: 
  Country: None (occurrence: None)
  Receive Date: 20050926
  Receipt Date: 20050901
  Transmission Date: 20060218
  Serious: Yes (Life-Threatening, Hospitalization)
  Sender: FDA-Public Use
  Company Number: JP-BRISTOL-MYERS SQUIBB COMPANY-13103700

PATIENT
  Age: 70 Year
  Sex: Female
  Weight: 57 kg

DRUGS (7)
  1. MEVALOTIN [Suspect]
     Indication: HYPERLIPIDAEMIA
     Route: 048
     Dates: end: 20050829
  2. ZANTAC [Suspect]
     Route: 048
     Dates: end: 20050829
  3. CONIEL [Suspect]
     Indication: HYPERTENSION
     Route: 048
     Dates: end: 20050829
  4. INDERAL [Suspect]
     Indication: HYPERTENSION
     Route: 048
     Dates: end: 20050829
  5. COMELIAN [Suspect]
     Route: 048
     Dates: end: 20050829
  6. DEPAS [Suspect]
     Route: 048
     Dates: end: 20050829
  7. SEVEN E-P [Suspect]
     Indication: DYSPEPSIA
     Route: 048
     Dates: end: 20050829

REACTIONS (1)
  - SHOCK [None]
